FAERS Safety Report 17100892 (Version 1)
Quarter: 2019Q4

REPORT INFORMATION
  Report Type: Spontaneous
  Country: US (occurrence: US)
  Receive Date: 20191202
  Receipt Date: 20191202
  Transmission Date: 20200122
  Serious: No
  Sender: FDA-Public Use
  Company Number: US-SA-2019SA329739

PATIENT

DRUGS (1)
  1. PLAVIX [Suspect]
     Active Substance: CLOPIDOGREL BISULFATE
     Indication: PROPHYLAXIS
     Dosage: UNK UNK, UNK
     Route: 065

REACTIONS (2)
  - Gastrointestinal haemorrhage [Recovered/Resolved]
  - Contusion [Recovered/Resolved]
